FAERS Safety Report 8141060-4 (Version None)
Quarter: 2012Q1

REPORT INFORMATION
  Report Type: 
  Country: None (occurrence: None)
  Receive Date: 20120216
  Receipt Date: 20120202
  Transmission Date: 20120608
  Serious: Yes (Other)
  Sender: FDA-Public Use
  Company Number: US-ELI_LILLY_AND_COMPANY-US201202004364

PATIENT

DRUGS (1)
  1. OLANZAPINE [Suspect]
     Dosage: UNK, UNKNOWN
     Route: 065
     Dates: start: 20120202

REACTIONS (9)
  - AGITATION [None]
  - DELIRIUM [None]
  - DISORIENTATION [None]
  - DEPRESSED LEVEL OF CONSCIOUSNESS [None]
  - SEDATION [None]
  - ATAXIA [None]
  - CONFUSIONAL STATE [None]
  - AKATHISIA [None]
  - DYSARTHRIA [None]
